FAERS Safety Report 5819396-9 (Version None)
Quarter: 2008Q3

REPORT INFORMATION
  Report Type: 
  Country: None (occurrence: None)
  Receive Date: 20080717
  Receipt Date: 20080708
  Transmission Date: 20090109
  Serious: Yes (Hospitalization)
  Sender: FDA-Public Use
  Company Number: 028-20785-08050257

PATIENT
  Age: 64 Year
  Sex: Female

DRUGS (7)
  1. THALOMID [Suspect]
     Indication: MULTIPLE MYELOMA
     Dosage: 50 MG, ORAL
     Route: 048
  2. LESCOL [Concomitant]
  3. BISOPROLOL FUMARATE [Concomitant]
  4. ASA (ACETYLSALICYLICA ACID) [Concomitant]
  5. DEXAMETHASONE TAB [Concomitant]
  6. LOTRIDERM (LOTRISONE) [Concomitant]
  7. GENTEAL (HYPROMELLOSE) [Concomitant]

REACTIONS (3)
  - BLOOD ALBUMIN DECREASED [None]
  - EOSINOPHIL COUNT INCREASED [None]
  - INTERSTITIAL LUNG DISEASE [None]
